FAERS Safety Report 10381720 (Version 2)
Quarter: 2014Q3

REPORT INFORMATION
  Report Type: Spontaneous
  Country: US (occurrence: US)
  Receive Date: 20140813
  Receipt Date: 20140925
  Transmission Date: 20150326
  Serious: Yes (Hospitalization, Other)
  Sender: FDA-Public Use
  Company Number: US-GILEAD-2014-0111387

PATIENT
  Age: 55 Year
  Sex: Female

DRUGS (3)
  1. LETAIRIS [Suspect]
     Active Substance: AMBRISENTAN
     Indication: PRODUCT USED FOR UNKNOWN INDICATION
     Dosage: 10 MG, QD
     Route: 065
     Dates: start: 20140626
  2. VELETRI [Concomitant]
     Active Substance: EPOPROSTENOL
  3. LETAIRIS [Suspect]
     Active Substance: AMBRISENTAN
     Dosage: 5 MG, QD
     Route: 065
     Dates: start: 20140626

REACTIONS (8)
  - Weight decreased [Unknown]
  - Clostridium difficile infection [Unknown]
  - Dizziness [Unknown]
  - Tachycardia [Unknown]
  - VIIth nerve paralysis [Unknown]
  - Hypotension [Unknown]
  - Heart rate increased [Unknown]
  - Anaemia [Unknown]

NARRATIVE: CASE EVENT DATE: 201407
